FAERS Safety Report 24201124 (Version 3)
Quarter: 2024Q3

REPORT INFORMATION
  Report Type: Other
  Country: US (occurrence: US)
  Receive Date: 20240812
  Receipt Date: 20240930
  Transmission Date: 20241017
  Serious: No
  Sender: TRAVERE THERAPEUTICS
  Company Number: US-TRAVERE-2024TVT00686

PATIENT
  Sex: Female

DRUGS (3)
  1. FILSPARI [Suspect]
     Active Substance: SPARSENTAN
     Indication: IgA nephropathy
     Dosage: TAKE 1 TABLET BY MOUTH 1 TIME A DAY FOR DAYS 1-14
     Route: 048
     Dates: start: 202406
  2. FILSPARI [Suspect]
     Active Substance: SPARSENTAN
     Dosage: 2 TABLETS BY MOUTH 1 TIME A DAY ON DAYS 15-30
     Route: 048
  3. PREDNISONE [Concomitant]
     Active Substance: PREDNISONE

REACTIONS (3)
  - Fatigue [Unknown]
  - Blood glucose decreased [None]
  - Muscular weakness [Unknown]
